FAERS Safety Report 24286242 (Version 1)
Quarter: 2024Q3

REPORT INFORMATION
  Report Type: Spontaneous
  Country: US (occurrence: US)
  Receive Date: 20240905
  Receipt Date: 20240905
  Transmission Date: 20241017
  Serious: Yes (Other)
  Sender: PFIZER
  Company Number: US-PFIZER INC-202400042635

PATIENT
  Age: 32 Year
  Sex: Male

DRUGS (9)
  1. LITFULO [Suspect]
     Active Substance: RITLECITINIB TOSYLATE
     Indication: Alopecia totalis
     Dosage: 50 MG, ONE TABLET ONCE DAILY
  2. LITFULO [Suspect]
     Active Substance: RITLECITINIB TOSYLATE
     Indication: Alopecia
     Dosage: 50 MG
  3. LITFULO [Suspect]
     Active Substance: RITLECITINIB TOSYLATE
     Indication: Eczema
  4. TADALAFIL [Concomitant]
     Active Substance: TADALAFIL
     Dosage: UNK
  5. ZOLOFT [Concomitant]
     Active Substance: SERTRALINE HYDROCHLORIDE
     Dosage: UNK
  6. IRON [Concomitant]
     Active Substance: IRON
     Dosage: UNK
  7. VITAMIN D NOS [Concomitant]
     Active Substance: CHOLECALCIFEROL\ERGOCALCIFEROL
     Dosage: UNK
  8. VITAMIN K [Concomitant]
     Active Substance: PHYTONADIONE
     Dosage: UNK
  9. VIAGRA [Concomitant]
     Active Substance: SILDENAFIL CITRATE
     Dosage: UNK

REACTIONS (3)
  - Limb operation [Unknown]
  - Product prescribing error [Unknown]
  - Wrong dosage formulation [Unknown]
